FAERS Safety Report 5756384-5 (Version None)
Quarter: 2008Q2

REPORT INFORMATION
  Report Type: 
  Country: None (occurrence: None)
  Receive Date: 20080528
  Receipt Date: 20080509
  Transmission Date: 20081010
  Serious: Yes (Other)
  Sender: FDA-Public Use
  Company Number: 2008AL004107

PATIENT
  Sex: Female

DRUGS (10)
  1. DIGOXIN [Suspect]
     Indication: CARDIAC DISORDER
     Dosage: DAILY PO
     Route: 048
     Dates: end: 20071017
  2. LOPERAMIDE HCL [Concomitant]
  3. COREG [Concomitant]
  4. LASIX [Concomitant]
  5. DICYCLOMINE [Concomitant]
  6. ALDACTONE [Concomitant]
  7. IRON [Concomitant]
  8. LISINOPRIL [Concomitant]
  9. WARFARIN SODIUM [Concomitant]
  10. TRAZODONE HCL [Concomitant]

REACTIONS (3)
  - DRUG LEVEL INCREASED [None]
  - FATIGUE [None]
  - MALAISE [None]
